FAERS Safety Report 8836495 (Version 1)
Quarter: 2012Q4

REPORT INFORMATION
  Report Type: 
  Country: JP (occurrence: JP)
  Receive Date: 20121011
  Receipt Date: 20121011
  Transmission Date: 20130627
  Serious: Yes (Hospitalization)
  Sender: FDA-Public Use
  Company Number: JP-PFIZER INC-2012244637

PATIENT
  Age: 47 Year
  Sex: Male
  Weight: 96.1 kg

DRUGS (6)
  1. HYDROCORTISONE [Suspect]
     Indication: PNEUMONIA PRIMARY ATYPICAL
     Dosage: 15 mg, daily
     Route: 048
  2. HYDROCORTISONE [Suspect]
     Dosage: 300 mg, daily
     Route: 042
  3. LEVOTHYROXINE [Concomitant]
     Dosage: 75 mg, daily
  4. DESMOPRESSIN [Concomitant]
     Dosage: 10 microG, daily
  5. TESTOSTERONE [Concomitant]
     Dosage: 125 mg, every 2 weeks
     Route: 030
  6. INSULIN [Concomitant]
     Dosage: UNK

REACTIONS (2)
  - Pulmonary embolism [Recovered/Resolved]
  - Rhabdomyolysis [Recovered/Resolved]
